FAERS Safety Report 5138610-9 (Version None)
Quarter: 2006Q4

REPORT INFORMATION
  Report Type: 
  Country: None (occurrence: None)
  Receive Date: 20061030
  Receipt Date: 19960320
  Transmission Date: 20070319
  Serious: Yes (Hospitalization)
  Sender: FDA-Public Use
  Company Number: FR-GLAXOSMITHKLINE-B0195107A

PATIENT
  Age: 31 Year
  Sex: Female
  Weight: 60 kg

DRUGS (4)
  1. CLAMOXYL [Suspect]
     Dosage: 1G TWICE PER DAY
     Route: 048
     Dates: start: 19951219, end: 19951221
  2. ASPEGIC 1000 [Suspect]
     Dosage: 500MG TWICE PER DAY
     Route: 048
     Dates: start: 19951219, end: 19951221
  3. LAMICTAL [Concomitant]
     Dosage: 600MG PER DAY
     Route: 048
  4. TEGRETOL [Concomitant]
     Dosage: 1600MG PER DAY
     Route: 048

REACTIONS (6)
  - ANTICONVULSANT DRUG LEVEL ABOVE THERAPEUTIC [None]
  - GAIT DISTURBANCE [None]
  - NAUSEA [None]
  - NYSTAGMUS [None]
  - PYREXIA [None]
  - VERTIGO [None]
